FAERS Safety Report 6447898-3 (Version None)
Quarter: 2009Q4

REPORT INFORMATION
  Report Type: 
  Country: None (occurrence: None)
  Receive Date: 20091120
  Receipt Date: 20091110
  Transmission Date: 20100525
  Serious: No
  Sender: FDA-Public Use
  Company Number: US-JNJFOC-20091103586

PATIENT
  Sex: Female
  Weight: 97.52 kg

DRUGS (12)
  1. FENTANYL CITRATE [Suspect]
     Indication: HEADACHE
     Route: 062
  2. CICLOPIROX [Concomitant]
     Indication: LIP DRY
     Route: 061
  3. FLUOCINONIDE [Concomitant]
     Indication: LIP DRY
     Route: 061
  4. DESOXIMETASONE [Concomitant]
     Indication: DRY MOUTH
     Dosage: AFTER MEALS
     Route: 002
  5. TRIAMCINOLONE [Concomitant]
     Indication: INFLAMMATION
     Route: 061
  6. KEPPRA [Concomitant]
     Route: 048
  7. KEPPRA [Concomitant]
     Indication: CONVULSION PROPHYLAXIS
     Dosage: WITH MEALS
     Route: 048
  8. ATARAX [Concomitant]
     Dosage: 25 MG 2 TABLETS AT BED TIME
     Route: 048
  9. ATARAX [Concomitant]
     Indication: PRURITUS GENERALISED
     Route: 048
  10. XANAX [Concomitant]
     Indication: ANXIETY
     Route: 048
  11. RESTORIL [Concomitant]
     Indication: ANXIETY
     Route: 048
  12. RESTORIL [Concomitant]
     Indication: SLEEP DISORDER
     Route: 048

REACTIONS (6)
  - APPLICATION SITE ERYTHEMA [None]
  - APPLICATION SITE PAIN [None]
  - APPLICATION SITE PRURITUS [None]
  - HEADACHE [None]
  - PRODUCT QUALITY ISSUE [None]
  - WRONG TECHNIQUE IN DRUG USAGE PROCESS [None]
